FAERS Safety Report 20919124 (Version 7)
Quarter: 2022Q3

REPORT INFORMATION
  Report Type: Spontaneous
  Country: US (occurrence: US)
  Receive Date: 20220606
  Receipt Date: 20220726
  Transmission Date: 20221026
  Serious: No
  Sender: FDA-Public Use
  Company Number: US-PFIZER INC-202200794239

PATIENT
  Age: 47 Year
  Sex: Female

DRUGS (1)
  1. IBRANCE [Suspect]
     Active Substance: PALBOCICLIB
     Dosage: UNK
     Dates: start: 20220531

REACTIONS (5)
  - Faeces soft [Unknown]
  - Fatigue [Unknown]
  - White blood cell count decreased [Unknown]
  - Alopecia [Recovering/Resolving]
  - Laryngitis [Unknown]

NARRATIVE: CASE EVENT DATE: 20220101
